FAERS Safety Report 5129507-9 (Version None)
Quarter: 2006Q4

REPORT INFORMATION
  Report Type: 
  Country: None (occurrence: None)
  Receive Date: 20061012
  Receipt Date: 20061005
  Transmission Date: 20070319
  Serious: Yes (Other)
  Sender: FDA-Public Use
  Company Number: 148289USA

PATIENT
  Age: 57 Year
  Sex: Female

DRUGS (3)
  1. LISINOPRIL [Suspect]
     Dosage: ORAL
     Route: 048
  2. VERAPAMIL [Suspect]
  3. HYDROCHLOROTHIAZIDE [Suspect]

REACTIONS (3)
  - BREAST CANCER RECURRENT [None]
  - RECURRENT CANCER [None]
  - UTERINE CANCER [None]
